FAERS Safety Report 8797767 (Version 4)
Quarter: 2012Q4

REPORT INFORMATION
  Report Type: 
  Country: US (occurrence: US)
  Receive Date: 20120920
  Receipt Date: 20121025
  Transmission Date: 20130627
  Serious: No
  Sender: FDA-Public Use
  Company Number: US-009507513-1209USA005013

PATIENT
  Age: 8 Year
  Sex: Female

DRUGS (2)
  1. MIRALAX [Suspect]
     Indication: CONSTIPATION
     Dosage: UNK, qd
     Route: 048
     Dates: start: 20120810
  2. MIRALAX [Suspect]
     Indication: MEDICAL OBSERVATION
     Dosage: UNK, qd
     Route: 048
     Dates: start: 201208

REACTIONS (4)
  - Diarrhoea [Recovering/Resolving]
  - Dysgeusia [Unknown]
  - Off label use [Unknown]
  - Drug administered to patient of inappropriate age [Unknown]
